FAERS Safety Report 18756322 (Version 1)
Quarter: 2021Q1

REPORT INFORMATION
  Report Type: Spontaneous
  Country: US (occurrence: US)
  Receive Date: 20210119
  Receipt Date: 20210119
  Transmission Date: 20210419
  Serious: Yes (Death, Life-Threatening, Hospitalization)
  Sender: FDA-Public Use
  Company Number: US-ELI_LILLY_AND_COMPANY-US202101005089

PATIENT
  Age: 64 Year
  Sex: Male
  Weight: 109.1 kg

DRUGS (1)
  1. BAMLANIVIMAB 700MG [Suspect]
     Active Substance: BAMLANIVIMAB
     Indication: COVID-19
     Dosage: 700 MG, SINGLE
     Route: 042
     Dates: start: 20210105, end: 20210105

REACTIONS (18)
  - Oedema peripheral [Unknown]
  - Blood pressure systolic decreased [Recovered/Resolved]
  - Hypopnoea [Unknown]
  - Fibrin D dimer increased [Unknown]
  - Blood pressure diastolic increased [Unknown]
  - Bradycardia [Unknown]
  - Unresponsive to stimuli [Unknown]
  - Acute kidney injury [Recovering/Resolving]
  - COVID-19 [Unknown]
  - Aspiration [Unknown]
  - Death [Fatal]
  - Blood sodium decreased [Unknown]
  - Dyspnoea [Unknown]
  - Pulse absent [Unknown]
  - Dehydration [Unknown]
  - Deep vein thrombosis [Unknown]
  - Diarrhoea [Unknown]
  - Haematochezia [Unknown]

NARRATIVE: CASE EVENT DATE: 20210105
